FAERS Safety Report 16252183 (Version 5)
Quarter: 2019Q4

REPORT INFORMATION
  Report Type: Report from Study
  Country: CA (occurrence: CA)
  Receive Date: 20190429
  Receipt Date: 20191024
  Transmission Date: 20200122
  Serious: Yes (Other)
  Sender: FDA-Public Use
  Company Number: CA-JNJFOC-20190430082

PATIENT
  Age: 63 Year
  Sex: Female
  Weight: 66 kg

DRUGS (2)
  1. PREDNISONE. [Concomitant]
     Active Substance: PREDNISONE
     Route: 065
  2. STELARA [Suspect]
     Active Substance: USTEKINUMAB
     Indication: PSORIASIS
     Route: 058
     Dates: start: 20121212

REACTIONS (6)
  - Pneumonia [Recovered/Resolved]
  - Systemic lupus erythematosus [Recovering/Resolving]
  - Tachycardia [Not Recovered/Not Resolved]
  - Lower respiratory tract infection [Not Recovered/Not Resolved]
  - Blood pressure abnormal [Unknown]
  - Vasculitis [Recovered/Resolved]

NARRATIVE: CASE EVENT DATE: 2019
